FAERS Safety Report 14381292 (Version 1)
Quarter: 2018Q1

REPORT INFORMATION
  Report Type: Spontaneous
  Country: US (occurrence: US)
  Receive Date: 20180112
  Receipt Date: 20180112
  Transmission Date: 20180509
  Serious: No
  Sender: FDA-Public Use
  Company Number: US-PFIZER INC-2018013719

PATIENT
  Sex: Female
  Weight: 50 kg

DRUGS (4)
  1. IBRANCE [Suspect]
     Active Substance: PALBOCICLIB
     Indication: BREAST CANCER FEMALE
     Dosage: 125 MG, 1X/DAY
     Route: 048
     Dates: start: 2017
  2. GABAPENTIN. [Concomitant]
     Active Substance: GABAPENTIN
     Indication: PAIN
     Dosage: UNK
  3. MORPHINE [Concomitant]
     Active Substance: MORPHINE
     Indication: PAIN
     Dosage: UNK
  4. FEMARA [Concomitant]
     Active Substance: LETROZOLE
     Dosage: 2.5 MG, UNK

REACTIONS (3)
  - Memory impairment [Unknown]
  - Malaise [Unknown]
  - Alopecia [Unknown]
